FAERS Safety Report 11501006 (Version 1)
Quarter: 2015Q3

REPORT INFORMATION
  Report Type: Spontaneous
  Country: US (occurrence: None)
  Receive Date: 20150911
  Receipt Date: 20150911
  Transmission Date: 20151125
  Serious: Yes (Hospitalization)
  Sender: FDA-Public Use
  Company Number: None

PATIENT
  Age: 57 Year
  Sex: Female
  Weight: 77.11 kg

DRUGS (16)
  1. LANTUS SOLOSTAR INSULIN [Concomitant]
  2. SYNTHROID [Concomitant]
     Active Substance: LEVOTHYROXINE SODIUM
  3. COQ10 [Concomitant]
     Active Substance: UBIDECARENONE
  4. SIMVASTATIN. [Concomitant]
     Active Substance: SIMVASTATIN
  5. SYMBICORT [Concomitant]
     Active Substance: BUDESONIDE\FORMOTEROL FUMARATE DIHYDRATE
  6. JUNIVIA [Concomitant]
  7. MAGNESIUM OXIDE. [Concomitant]
     Active Substance: MAGNESIUM OXIDE
  8. XANAX [Concomitant]
     Active Substance: ALPRAZOLAM
  9. ATENOLOL. [Concomitant]
     Active Substance: ATENOLOL
  10. OMEPRAZOLE (PRILOSEC) [Concomitant]
  11. TRILEPTAL [Suspect]
     Active Substance: OXCARBAZEPINE
     Indication: BIPOLAR DISORDER
     Dosage: 1 TABLET BY MOUTH TWICE PER DAY 2 PER DAY BY MOUTH
     Route: 048
     Dates: start: 20150708, end: 20150820
  12. TRILEPTAL [Suspect]
     Active Substance: OXCARBAZEPINE
     Indication: INSOMNIA
     Dosage: 1 TABLET BY MOUTH TWICE PER DAY 2 PER DAY BY MOUTH
     Route: 048
     Dates: start: 20150708, end: 20150820
  13. CALCITROL [Concomitant]
     Active Substance: CALCITRIOL
  14. CALCIUM [Concomitant]
     Active Substance: CALCIUM
  15. ASPRIN 81 [Concomitant]
  16. VIT D (ERGOCALCIFEROL) [Concomitant]
     Active Substance: ERGOCALCIFEROL

REACTIONS (17)
  - Nausea [None]
  - Hypoaesthesia [None]
  - Fall [None]
  - Confusional state [None]
  - Sinusitis [None]
  - Blood glucose decreased [None]
  - Blindness [None]
  - Paraesthesia [None]
  - Vomiting [None]
  - Diarrhoea [None]
  - Blood sodium decreased [None]
  - Blood calcium decreased [None]
  - Disorientation [None]
  - Throat tightness [None]
  - Dysuria [None]
  - Amnesia [None]
  - Drug withdrawal syndrome [None]

NARRATIVE: CASE EVENT DATE: 20150720
